FAERS Safety Report 11996646 (Version 1)
Quarter: 2016Q1

REPORT INFORMATION
  Report Type: Spontaneous
  Country: US (occurrence: US)
  Receive Date: 20160203
  Receipt Date: 20160203
  Transmission Date: 20160526
  Serious: Yes (Other)
  Sender: FDA-Public Use
  Company Number: US-TEVA-620926USA

PATIENT
  Age: 45 Year
  Sex: Male

DRUGS (1)
  1. METRONIDAZOLE. [Suspect]
     Active Substance: METRONIDAZOLE
     Indication: CLOSTRIDIUM DIFFICILE INFECTION
     Dosage: FOR 5 MONTHS
     Route: 065

REACTIONS (4)
  - Hemiparesis [Recovering/Resolving]
  - Toxicity to various agents [Unknown]
  - Neurotoxicity [Recovering/Resolving]
  - Dysarthria [Unknown]
